FAERS Safety Report 14023623 (Version 1)
Quarter: 2017Q3

REPORT INFORMATION
  Report Type: Spontaneous
  Country: IT (occurrence: IT)
  Receive Date: 20170929
  Receipt Date: 20170929
  Transmission Date: 20171128
  Serious: Yes (Hospitalization)
  Sender: FDA-Public Use
  Company Number: IT-BAYER-2017-180704

PATIENT
  Age: 76 Year
  Sex: Female

DRUGS (6)
  1. PRIMOVIST [Suspect]
     Active Substance: GADOXETATE DISODIUM
     Indication: NUCLEAR MAGNETIC RESONANCE IMAGING
     Dosage: 1 DF, ONCE
     Route: 042
     Dates: start: 20170517, end: 20170517
  2. TRIATEC [Concomitant]
     Active Substance: RAMIPRIL
  3. NORVASC [Concomitant]
     Active Substance: AMLODIPINE BESYLATE
  4. LASIX [Concomitant]
     Active Substance: FUROSEMIDE
  5. TAVOR EXPIDET [Concomitant]
     Active Substance: LORAZEPAM
  6. CARDICOR [Concomitant]
     Active Substance: BISOPROLOL

REACTIONS (4)
  - Lip oedema [Unknown]
  - Throat tightness [Unknown]
  - Dysphonia [Unknown]
  - Tongue oedema [Unknown]

NARRATIVE: CASE EVENT DATE: 20170517
